FAERS Safety Report 7499064-0 (Version None)
Quarter: 2011Q2

REPORT INFORMATION
  Report Type: 
  Country: None (occurrence: None)
  Receive Date: 20110524
  Receipt Date: 20110512
  Transmission Date: 20111010
  Serious: Yes (Hospitalization, Other)
  Sender: FDA-Public Use
  Company Number: US-BAYER-200923281NA

PATIENT
  Age: 73 Year
  Sex: Female

DRUGS (13)
  1. METOPROLOL SUCCINATE [Concomitant]
     Dosage: 25 MG, BID
     Route: 048
  2. WARFARIN SODIUM [Concomitant]
     Dosage: 7.5 MG, QD
     Route: 048
  3. ACETYLSALICYLIC ACID SRT [Concomitant]
     Dosage: 81 MG, QD
     Route: 048
  4. INSULIN [Concomitant]
     Dosage: UNK
     Route: 058
  5. AVANDIA [Concomitant]
     Dosage: 8 MG, QD
     Route: 048
  6. TRASYLOL [Suspect]
     Indication: PRODUCT USED FOR UNKNOWN INDICATION
     Route: 042
     Dates: start: 20070320
  7. LASIX [Concomitant]
     Dosage: 20 MG, QD
     Route: 048
  8. AMITRIPTYLINE HCL [Concomitant]
     Dosage: 25 MG, QD
     Route: 048
  9. TRAMADOL HCL [Concomitant]
     Dosage: 50 MG, TID
     Route: 048
  10. LIPITOR [Concomitant]
     Dosage: 20 MG, QD
     Route: 048
  11. CARDIZEM [Concomitant]
     Dosage: UNK
     Route: 042
     Dates: start: 20070201
  12. LISINOPRIL [Concomitant]
     Dosage: 20 MG, QD
     Route: 048
  13. DIGOXIN [Concomitant]
     Dosage: 0.125 MG, QD
     Route: 048

REACTIONS (12)
  - FEAR [None]
  - MULTI-ORGAN FAILURE [None]
  - ANHEDONIA [None]
  - RENAL IMPAIRMENT [None]
  - EMOTIONAL DISTRESS [None]
  - ANXIETY [None]
  - RENAL FAILURE [None]
  - STRESS [None]
  - PAIN [None]
  - INJURY [None]
  - RENAL INJURY [None]
  - UNEVALUABLE EVENT [None]
